FAERS Safety Report 13486213 (Version 1)
Quarter: 2017Q2

REPORT INFORMATION
  Report Type: Spontaneous
  Country: US (occurrence: US)
  Receive Date: 20170426
  Receipt Date: 20170426
  Transmission Date: 20170830
  Serious: Yes (Hospitalization)
  Sender: FDA-Public Use
  Company Number: US-PFIZER INC-2016193951

PATIENT
  Age: 56 Year
  Sex: Male

DRUGS (20)
  1. FENTANYL. [Suspect]
     Active Substance: FENTANYL
     Dosage: 75 MCG/72 HOURS  ON DAY 20
  2. MORPHINE SULFATE. [Suspect]
     Active Substance: MORPHINE SULFATE
     Indication: AMPUTATION STUMP PAIN
  3. FENTANYL. [Suspect]
     Active Substance: FENTANYL
     Indication: ANALGESIC THERAPY
     Dosage: 12 MCG/HOUR, (TOTAL 24 HOUR DOSE=288 MCG) POST OPERATIVE DAY 1
  4. FENTANYL. [Suspect]
     Active Substance: FENTANYL
     Indication: AMPUTATION STUMP PAIN
     Dosage: 25 MCG EVERY 3-5 DAYS (A TOTAL OF 75 MCG/HR)
     Route: 062
  5. FENTANYL CITRATE. [Suspect]
     Active Substance: FENTANYL CITRATE
     Indication: PHANTOM PAIN
  6. HYDROMORPHONE HYDROCHLORIDE. [Suspect]
     Active Substance: HYDROMORPHONE HYDROCHLORIDE
     Indication: PHANTOM PAIN
  7. MORPHINE SULFATE. [Suspect]
     Active Substance: MORPHINE SULFATE
     Indication: ANALGESIC THERAPY
     Dosage: 60 MG, 3X/DAY (Q8 HOUR)
     Route: 048
  8. FENTANYL CITRATE. [Suspect]
     Active Substance: FENTANYL CITRATE
     Indication: AMPUTATION STUMP PAIN
  9. HYDROMORPHONE HYDROCHLORIDE. [Suspect]
     Active Substance: HYDROMORPHONE HYDROCHLORIDE
     Indication: ANALGESIC THERAPY
     Dosage: 30 MG, UNK (FIRST 24 HOURS POST OPERATIVE DAY 1, TOTAL)
     Route: 042
  10. HYDROMORPHONE HYDROCHLORIDE. [Suspect]
     Active Substance: HYDROMORPHONE HYDROCHLORIDE
     Indication: AMPUTATION STUMP PAIN
  11. HYDROMORPHONE [Suspect]
     Active Substance: HYDROMORPHONE
     Indication: PHANTOM PAIN
  12. HYDROMORPHONE [Suspect]
     Active Substance: HYDROMORPHONE
     Indication: AMPUTATION STUMP PAIN
  13. FENTANYL CITRATE. [Suspect]
     Active Substance: FENTANYL CITRATE
     Indication: ANALGESIC THERAPY
     Dosage: 500 UG (FIRST 24 HOURS POST OPERATIVE DAY 1,TOTAL)
     Route: 042
  14. MORPHINE SULFATE. [Suspect]
     Active Substance: MORPHINE SULFATE
     Indication: NECK PAIN
  15. HYDROMORPHONE [Suspect]
     Active Substance: HYDROMORPHONE
     Indication: ANALGESIC THERAPY
     Dosage: 12 MG, UNK (FIRST 24 HOURS POST OPERATION; POST OPERATIVE DAY 1,TOTAL)
     Route: 048
  16. NORCO [Concomitant]
     Active Substance: ACETAMINOPHEN\HYDROCODONE BITARTRATE
     Indication: PAIN IN EXTREMITY
  17. MORPHINE SULFATE. [Suspect]
     Active Substance: MORPHINE SULFATE
     Indication: PAIN IN EXTREMITY
  18. MORPHINE SULFATE. [Suspect]
     Active Substance: MORPHINE SULFATE
     Indication: PHANTOM PAIN
     Dosage: 30 MG (FIRST 24 HOURS POST OPERATIVE DAY 1,TOTAL)
  19. FENTANYL. [Suspect]
     Active Substance: FENTANYL
     Indication: PHANTOM PAIN
     Dosage: 12 MCG/HOUR/72HOURS
  20. NORCO [Concomitant]
     Active Substance: ACETAMINOPHEN\HYDROCODONE BITARTRATE
     Indication: NECK PAIN
     Dosage: UNK (10/325, 6-7/DAY)
     Route: 048

REACTIONS (1)
  - Hyperaesthesia [Recovered/Resolved]
